FAERS Safety Report 7801412 (Version 3)
Quarter: 2013Q1

REPORT INFORMATION
  Report Type: Report from Study
  Country: DE (occurrence: DE)
  Receive Date: 20110207
  Receipt Date: 20130129
  Transmission Date: 20140127
  Serious: Yes (Death, Hospitalization)
  Sender: FDA-Public Use
  Company Number: DE-ELI_LILLY_AND_COMPANY-DE201101004588

PATIENT
  Age: 67 Year
  Sex: Male
  Weight: 71 kg

DRUGS (11)
  1. NECITUMUMAB [Suspect]
     Indication: NON-SMALL CELL LUNG CANCER STAGE IV
     Dosage: 800 MG, OTHER
     Dates: start: 20101117
  2. PEMETREXED [Suspect]
     Indication: NON-SMALL CELL LUNG CANCER STAGE IV
     Dosage: 950 MG, OTHER
     Dates: start: 20101117
  3. CISPLATIN [Suspect]
     Indication: NON-SMALL CELL LUNG CANCER STAGE IV
     Dosage: 143 MG, OTHER
     Dates: start: 20101117
  4. FENISTIL [Concomitant]
     Indication: PRURITUS
     Dates: start: 20101210
  5. EUTHYROX [Concomitant]
     Indication: HYPOTHYROIDISM
  6. ALLOPURINOL [Concomitant]
     Indication: HYPERURICAEMIA
  7. PANTOZOL [Concomitant]
     Indication: PROPHYLAXIS
     Dosage: UNK, UNK
  8. IBUPROFEN [Concomitant]
     Indication: PAIN
     Dates: start: 201010
  9. ZOMETA [Concomitant]
     Indication: METASTASES TO BONE
     Dates: start: 20101105
  10. FOLSAN [Concomitant]
     Indication: PROPHYLAXIS
     Dates: start: 201011
  11. VITAMIN B12 [Concomitant]
     Indication: PROPHYLAXIS
     Dates: start: 201011

REACTIONS (2)
  - Pneumonia [Fatal]
  - Herpes oesophagitis [Not Recovered/Not Resolved]
